FAERS Safety Report 5063921-5 (Version None)
Quarter: 2006Q3

REPORT INFORMATION
  Report Type: 
  Country: None (occurrence: None)
  Receive Date: 20060727
  Receipt Date: 20060712
  Transmission Date: 20061208
  Serious: Yes (Death)
  Sender: FDA-Public Use
  Company Number: CO-BOEHRINGER INGELHEIM PHARMACEUTICALS, INC.-2006-BP-08007CL

PATIENT
  Sex: Male
  Weight: 60 kg

DRUGS (3)
  1. SECOTEX CAPSULES [Suspect]
     Indication: BENIGN PROSTATIC HYPERPLASIA
     Route: 048
     Dates: start: 20051013, end: 20051031
  2. METOPROLOL TARTRATE [Concomitant]
     Indication: HYPERTENSION
  3. LANITOP [Concomitant]
     Indication: CARDIAC FAILURE CONGESTIVE

REACTIONS (1)
  - PULMONARY EMBOLISM [None]
